FAERS Safety Report 8320918-7 (Version None)
Quarter: 2012Q2

REPORT INFORMATION
  Report Type: 
  Country: None (occurrence: None)
  Receive Date: 20120430
  Receipt Date: 20120424
  Transmission Date: 20120825
  Serious: Yes (Other)
  Sender: FDA-Public Use
  Company Number: PHHY2012AU014364

PATIENT
  Sex: Female

DRUGS (6)
  1. LEVOTHYROXINE SODIUM [Concomitant]
     Dosage: 100 UG, UNK
     Route: 048
     Dates: start: 19990101
  2. SANDOSTATIN LAR [Suspect]
     Indication: ACROMEGALY
     Dosage: 10 MG
     Route: 030
     Dates: end: 20120215
  3. AURORIX [Concomitant]
     Dosage: 300 MG, UNK
     Route: 048
  4. NEXIUM [Concomitant]
     Dosage: 40 MG, UNK
     Route: 048
  5. LIPITOR [Concomitant]
     Dosage: 40 MG, UNK
     Route: 048
  6. HYSONE [Concomitant]
     Dosage: 20 MG, UNK
     Route: 048
     Dates: start: 20040101

REACTIONS (5)
  - BREAST MASS [None]
  - FATIGUE [None]
  - ABDOMINAL DISCOMFORT [None]
  - WEIGHT DECREASED [None]
  - MALAISE [None]
